FAERS Safety Report 4692586-7 (Version None)
Quarter: 2005Q2

REPORT INFORMATION
  Report Type: 
  Country: None (occurrence: None)
  Receive Date: 20050617
  Receipt Date: 20050309
  Transmission Date: 20051028
  Serious: Yes (Hospitalization, Disabling)
  Sender: FDA-Public Use
  Company Number: US-MERCK-0503USA01933

PATIENT
  Age: 48 Year
  Sex: Male
  Weight: 82 kg

DRUGS (5)
  1. VIOXX [Suspect]
     Indication: RHEUMATOID ARTHRITIS
     Route: 048
     Dates: start: 20001003, end: 20030228
  2. VIOXX [Suspect]
     Indication: BACK PAIN
     Route: 048
     Dates: start: 20001003, end: 20030228
  3. MOTRIN [Concomitant]
     Route: 065
     Dates: start: 19990101, end: 20030606
  4. TESTOSTERONE [Concomitant]
     Route: 065
     Dates: start: 20010101
  5. NEXIUM [Concomitant]
     Route: 065

REACTIONS (15)
  - ACUTE MYOCARDIAL INFARCTION [None]
  - AKINESIA [None]
  - AORTIC VALVE INCOMPETENCE [None]
  - BLOOD TRIGLYCERIDES INCREASED [None]
  - CARDIAC DISORDER [None]
  - CARDIAC FLUTTER [None]
  - CARDIAC MURMUR [None]
  - CHEST PAIN [None]
  - CORONARY ARTERY DISEASE [None]
  - HEART DISEASE CONGENITAL [None]
  - HYPOKINESIA [None]
  - MYOCARDIAL INFARCTION [None]
  - SINUS TACHYCARDIA [None]
  - VENTRICULAR DYSFUNCTION [None]
  - VENTRICULAR HYPOKINESIA [None]
